FAERS Safety Report 5196825-8 (Version None)
Quarter: 2007Q1

REPORT INFORMATION
  Report Type: 
  Country: None (occurrence: None)
  Receive Date: 20070103
  Receipt Date: 20061222
  Transmission Date: 20070707
  Serious: Yes (Other)
  Sender: FDA-Public Use
  Company Number: 2006SE06894

PATIENT
  Age: 71 Year
  Sex: Female

DRUGS (9)
  1. AMIAS 2MG TABLETS [Suspect]
     Indication: HYPERTENSION
     Route: 048
     Dates: start: 20061026, end: 20061114
  2. ASPIRIN [Concomitant]
     Route: 065
  3. ATENOLOL [Concomitant]
     Route: 065
  4. CHLORPHENIRAMINE MALEATE [Concomitant]
     Route: 065
  5. INSULIN [Concomitant]
     Route: 065
  6. ISOSORBIDE MONONITRATE [Concomitant]
     Route: 065
  7. LEVOTHYROXINE SODIUM [Concomitant]
     Route: 065
  8. ACETAMINOPHEN [Concomitant]
     Route: 065
  9. TEMAZEPAM [Concomitant]
     Route: 065

REACTIONS (5)
  - HEADACHE [None]
  - HEPATIC PAIN [None]
  - JAUNDICE [None]
  - MALAISE [None]
  - NAUSEA [None]
